FAERS Safety Report 11975351 (Version 1)
Quarter: 2016Q1

REPORT INFORMATION
  Report Type: Spontaneous
  Country: US (occurrence: US)
  Receive Date: 20160128
  Receipt Date: 20160128
  Transmission Date: 20160526
  Serious: Yes (Other)
  Sender: FDA-Public Use
  Company Number: US-DSJP-DSU-2015-129649

PATIENT

DRUGS (1)
  1. BENICAR HCT [Suspect]
     Active Substance: HYDROCHLOROTHIAZIDE\OLMESARTAN MEDOXOMIL
     Indication: HYPERTENSION
     Dosage: 40/12.5MG
     Dates: start: 2011, end: 201504

REACTIONS (7)
  - Large intestine polyp [Unknown]
  - Helicobacter gastritis [Unknown]
  - Rectal haemorrhage [Recovered/Resolved]
  - Gastric cancer [Unknown]
  - Constipation [Unknown]
  - Malabsorption [Unknown]
  - Haemorrhoids [Unknown]

NARRATIVE: CASE EVENT DATE: 201101
